FAERS Safety Report 10983179 (Version 2)
Quarter: 2015Q2

REPORT INFORMATION
  Report Type: Spontaneous
  Country: US (occurrence: US)
  Receive Date: 20150403
  Receipt Date: 20150505
  Transmission Date: 20150821
  Serious: Yes (Other)
  Sender: FDA-Public Use
  Company Number: PHEH2015US005838

PATIENT
  Sex: Female

DRUGS (1)
  1. GILENYA [Suspect]
     Active Substance: FINGOLIMOD HYDROCHLORIDE
     Indication: PRODUCT USED FOR UNKNOWN INDICATION
     Route: 065
     Dates: start: 20141217, end: 20150309

REACTIONS (8)
  - Cystoid macular oedema [Recovered/Resolved]
  - Photopsia [Not Recovered/Not Resolved]
  - Chorioretinopathy [Unknown]
  - Vitreous degeneration [Unknown]
  - Visual acuity tests abnormal [Unknown]
  - Vitreous detachment [Unknown]
  - Vitreous floaters [Not Recovered/Not Resolved]
  - Cataract [Unknown]
